FAERS Safety Report 9521633 (Version 1)
Quarter: 2013Q1

REPORT INFORMATION
  Report Type: Spontaneous
  Country: US (occurrence: None)
  Receive Date: 20130305
  Receipt Date: 20130305
  Transmission Date: 20140127
  Serious: Yes (Hospitalization, Other)
  Sender: FDA-Public Use
  Company Number: 163-21880-12011414

PATIENT
  Age: 82 Year
  Sex: Male

DRUGS (8)
  1. REVLIMID (LENALIDOMIDE) (25 MILLIGRAM, CAPSULES) [Suspect]
     Indication: PLASMA CELL MYELOMA
     Route: 048
     Dates: start: 201011
  2. GABAPENTIN(GABAPENTIN)(UNKNOWN) [Concomitant]
  3. LORATADINE(LORATADINE)(UNKNOWN) [Concomitant]
  4. DEXAMETHASONE(DEXAMETHASONE)(UNKNOWN) [Concomitant]
  5. VITAMIN C(ASCORBIC ACID)(UNKNOWN) [Concomitant]
  6. CALCIUM +D(OS-CAL)(UNKNOWN) [Concomitant]
  7. ASPIRIN(ACETYLSALICYLIC ACID)(UNKNOWN) [Concomitant]
  8. MULTIVITAMINS(MULTIVITAMINS)(UNKNOWN) [Concomitant]

REACTIONS (3)
  - Deep vein thrombosis [None]
  - Anaemia [None]
  - Rash [None]
